FAERS Safety Report 6571326-0 (Version None)
Quarter: 2010Q1

REPORT INFORMATION
  Report Type: 
  Country: None (occurrence: None)
  Receive Date: 20100202
  Receipt Date: 20100202
  Transmission Date: 20100710
  Serious: Yes (Other)
  Sender: FDA-Public Use
  Company Number: None

PATIENT
  Age: 73 Year
  Sex: Female
  Weight: 60.782 kg

DRUGS (1)
  1. TOBI [Suspect]
     Indication: PSEUDOMONAS INFECTION
     Dosage: NEBULIZER BID
     Route: 045
     Dates: start: 20091214

REACTIONS (2)
  - ASTHENIA [None]
  - COUGH [None]
